FAERS Safety Report 22044325 (Version 1)
Quarter: 2023Q1

REPORT INFORMATION
  Report Type: Spontaneous
  Country: JP (occurrence: JP)
  Receive Date: 20230228
  Receipt Date: 20230228
  Transmission Date: 20230417
  Serious: No
  Sender: FDA-Public Use
  Company Number: JP-GSKNCCC-Case-01676205_AE-67713

PATIENT

DRUGS (3)
  1. SOTROVIMAB [Suspect]
     Active Substance: SOTROVIMAB
     Indication: COVID-19
     Dosage: XEVUDY 8 ML, DILUTED WITH 42 ML OF SALINE, TOTAL DOSE OF 49 ML ADMINISTERED
     Dates: start: 20230221, end: 20230221
  2. SOTROVIMAB [Suspect]
     Active Substance: SOTROVIMAB
     Indication: Body mass index
  3. SOTROVIMAB [Suspect]
     Active Substance: SOTROVIMAB
     Indication: Tobacco user

REACTIONS (3)
  - Erythema [Recovering/Resolving]
  - Pruritus [Recovering/Resolving]
  - Urticaria [Recovering/Resolving]

NARRATIVE: CASE EVENT DATE: 20230221
